FAERS Safety Report 8029977-2 (Version None)
Quarter: 2012Q1

REPORT INFORMATION
  Report Type: 
  Country: None (occurrence: None)
  Receive Date: 20120109
  Receipt Date: 20120103
  Transmission Date: 20120608
  Serious: Yes (Hospitalization, Disabling, Other)
  Sender: FDA-Public Use
  Company Number: BR-US-EMD SERONO, INC.-7079353

PATIENT
  Sex: Male

DRUGS (19)
  1. BONIVA [Concomitant]
  2. CEWIN [Concomitant]
  3. DICETAL [Concomitant]
  4. EUTONIS [Concomitant]
  5. NARATRIPTAN [Concomitant]
  6. CLONAZEPAM [Concomitant]
     Dosage: ONE-HALF TABLET DAILY
  7. DIASEC [Concomitant]
  8. PHENERGAN [Concomitant]
  9. ENDOFOLIN [Concomitant]
  10. IMOVANE [Concomitant]
  11. CYMBALTA [Concomitant]
  12. DONARE RETARD [Concomitant]
  13. LOPID [Concomitant]
  14. PANTOPRAZOLE [Concomitant]
  15. PROPRANOLOL [Concomitant]
  16. TYLENOL DC [Concomitant]
  17. ALLOPURINOL [Concomitant]
  18. REBIF [Suspect]
     Indication: RELAPSING-REMITTING MULTIPLE SCLEROSIS
     Dates: start: 20101227, end: 20120103
  19. OSCAL [Concomitant]

REACTIONS (6)
  - DEAFNESS BILATERAL [None]
  - COGNITIVE DISORDER [None]
  - URINARY TRACT INFECTION [None]
  - BONE LOSS [None]
  - MULTIPLE SCLEROSIS RELAPSE [None]
  - PAIN [None]
